FAERS Safety Report 5878254-4 (Version None)
Quarter: 2008Q3

REPORT INFORMATION
  Report Type: 
  Country: None (occurrence: None)
  Receive Date: 20080911
  Receipt Date: 20080902
  Transmission Date: 20090109
  Serious: Yes (Death)
  Sender: FDA-Public Use
  Company Number: JP-ABBOTT-08P-087-0475408-00

PATIENT
  Age: 91 Year
  Sex: Male

DRUGS (8)
  1. LEUPROLIDE ACETATE [Suspect]
     Indication: PROSTATE CANCER STAGE II
     Route: 058
     Dates: start: 20070125, end: 20070709
  2. BROTIZOLAM [Concomitant]
     Indication: INSOMNIA
     Route: 048
     Dates: end: 20070726
  3. MAGNESIUM OXIDE [Concomitant]
     Indication: CONSTIPATION
     Route: 048
     Dates: start: 20070710, end: 20070726
  4. IRSOGLADINE MALEATE [Concomitant]
     Indication: GASTRITIS PROPHYLAXIS
     Route: 048
     Dates: start: 20070625, end: 20070726
  5. DICLOFENAC SODIUM [Concomitant]
     Indication: URETHRAL PAIN
     Route: 048
     Dates: start: 20070625, end: 20070726
  6. NAFTOPIDIL [Concomitant]
     Indication: BENIGN PROSTATIC HYPERPLASIA
     Route: 048
  7. BICALUTAMIDE [Concomitant]
     Indication: PROSTATE CANCER STAGE II
     Route: 048
     Dates: end: 20070726
  8. TICE BCG [Concomitant]
     Indication: BLADDER CANCER
     Route: 043
     Dates: end: 20070215

REACTIONS (2)
  - ACUTE RESPIRATORY FAILURE [None]
  - PNEUMONIA BACTERIAL [None]
